FAERS Safety Report 18101172 (Version 1)
Quarter: 2020Q3

REPORT INFORMATION
  Report Type: Spontaneous
  Country: HR (occurrence: HR)
  Receive Date: 20200801
  Receipt Date: 20200801
  Transmission Date: 20201103
  Serious: Yes (Congenital Anomaly, Other)
  Sender: FDA-Public Use
  Company Number: HR-TEVA-2020-HR-1807168

PATIENT
  Age: 51 Year
  Sex: Female

DRUGS (11)
  1. PACLITAXEL. [Suspect]
     Active Substance: PACLITAXEL
     Indication: INVASIVE LOBULAR BREAST CARCINOMA
     Dosage: UNK 12 CYCLES IN ADJUVANT SETTING
     Route: 065
     Dates: start: 20160318, end: 20160614
  2. DENOSUMAB [Suspect]
     Active Substance: DENOSUMAB
     Dosage: UNK
     Route: 065
     Dates: start: 20180323, end: 20200401
  3. EXEMESTANE. [Suspect]
     Active Substance: EXEMESTANE
     Indication: INVASIVE LOBULAR BREAST CARCINOMA
     Dosage: UNK
     Route: 065
     Dates: start: 201607, end: 201712
  4. DOXORUBICIN [Suspect]
     Active Substance: DOXORUBICIN
     Indication: INVASIVE LOBULAR BREAST CARCINOMA
     Dosage: UNK, THERAPY START DATE AND THERAPY END DATE : ASKED BUT UNKNOWN
     Route: 065
  5. PALBOCICLIB [Suspect]
     Active Substance: PALBOCICLIB
     Indication: INVASIVE LOBULAR BREAST CARCINOMA
     Dosage: UNK
     Route: 065
     Dates: start: 20190621
  6. CYCLOPHOSPHAMIDE. [Suspect]
     Active Substance: CYCLOPHOSPHAMIDE
     Indication: INVASIVE LOBULAR BREAST CARCINOMA
     Dosage: UNK, THERAPY START DATE AND THERAPY END DATE : ASKED BUT UNKNOWN
     Route: 065
  7. GOSERELIN [Concomitant]
     Active Substance: GOSERELIN
     Indication: PRODUCT USED FOR UNKNOWN INDICATION
     Dosage: UNK
     Route: 065
     Dates: start: 20160908
  8. FULVESTRANT. [Suspect]
     Active Substance: FULVESTRANT
     Indication: BREAST CANCER METASTATIC
     Dosage: 500 MG, QMO
     Route: 030
     Dates: start: 20171229, end: 20191224
  9. FULVESTRANT. [Suspect]
     Active Substance: FULVESTRANT
     Indication: INVASIVE LOBULAR BREAST CARCINOMA
  10. DENOSUMAB [Suspect]
     Active Substance: DENOSUMAB
     Indication: INVASIVE LOBULAR BREAST CARCINOMA
     Dosage: UNK, THERAPY END DATE : ASKED BUT UNKNOWN
     Route: 065
     Dates: start: 201712
  11. DOCETAXEL. [Suspect]
     Active Substance: DOCETAXEL
     Indication: INVASIVE LOBULAR BREAST CARCINOMA
     Dosage: UNK, THERAPY START DATE AND THERAPY END DATE : ASKED BUT UNKNOWN
     Route: 065

REACTIONS (6)
  - PIK3CA-activated mutation [Unknown]
  - Malignant neoplasm progression [Unknown]
  - Drug resistance [Unknown]
  - Invasive lobular breast carcinoma [Unknown]
  - Metastases to liver [Unknown]
  - Metastases to bone [Unknown]

NARRATIVE: CASE EVENT DATE: 201712
